FAERS Safety Report 8981534 (Version 1)
Quarter: 2012Q4

REPORT INFORMATION
  Report Type: 
  Country: US (occurrence: US)
  Receive Date: 20121221
  Receipt Date: 20121221
  Transmission Date: 20130627
  Serious: No
  Sender: FDA-Public Use
  Company Number: US-BAYER-2012-133470

PATIENT
  Age: 23 Year
  Sex: Female

DRUGS (1)
  1. GADAVIST [Suspect]
     Indication: MRI
     Dosage: 5 ml, ONCE
     Route: 042
     Dates: start: 20121218, end: 20121218

REACTIONS (5)
  - Throat irritation [None]
  - Ear pruritus [None]
  - Urticaria [None]
  - Pruritus [None]
  - Eye pruritus [None]
